FAERS Safety Report 23768483 (Version 1)
Quarter: 2024Q2

REPORT INFORMATION
  Report Type: Spontaneous
  Country: US (occurrence: US)
  Receive Date: 20240422
  Receipt Date: 20240422
  Transmission Date: 20240716
  Serious: No
  Sender: FDA-Public Use
  Company Number: US-MELINTA THERAPEUTICS, LLC-US-MLNT-23-00682

PATIENT

DRUGS (4)
  1. TOPROL XL [Suspect]
     Active Substance: METOPROLOL SUCCINATE
     Indication: Blood pressure measurement
     Dosage: UNK
     Route: 048
  2. TOPROL XL [Suspect]
     Active Substance: METOPROLOL SUCCINATE
     Indication: Supraventricular tachycardia
  3. METOPROLOL SUCCINATE [Suspect]
     Active Substance: METOPROLOL SUCCINATE
     Indication: Blood pressure measurement
     Dosage: UNK
     Route: 048
  4. METOPROLOL SUCCINATE [Suspect]
     Active Substance: METOPROLOL SUCCINATE
     Indication: Supraventricular tachycardia

REACTIONS (8)
  - Chills [Unknown]
  - Abdominal pain upper [Unknown]
  - Chest pain [Unknown]
  - Headache [Unknown]
  - Hyperhidrosis [Unknown]
  - Off label use [Unknown]
  - Drug ineffective [Unknown]
  - Product availability issue [Unknown]
